FAERS Safety Report 10328322 (Version 1)
Quarter: 2014Q3

REPORT INFORMATION
  Report Type: Spontaneous
  Country: US (occurrence: None)
  Receive Date: 20140716
  Receipt Date: 20140716
  Transmission Date: 20150326
  Serious: Yes (Hospitalization)
  Sender: FDA-Public Use
  Company Number: None

PATIENT
  Age: 82 Year
  Sex: Male
  Weight: 73.6 kg

DRUGS (3)
  1. NORTRIPTYLINE [Suspect]
     Active Substance: NORTRIPTYLINE
     Indication: PAIN
     Route: 048
  2. ACETAMINOPHEN/BUTALBITAL [Suspect]
     Active Substance: ACETAMINOPHEN\BUTALBITAL
     Indication: HEADACHE
  3. NORTRIPTYLINE [Suspect]
     Active Substance: NORTRIPTYLINE
     Indication: DEPRESSION
     Route: 048

REACTIONS (7)
  - Self-medication [None]
  - Delirium [None]
  - Altered state of consciousness [None]
  - Confusional state [None]
  - Multiple drug therapy [None]
  - Cognitive disorder [None]
  - Hallucination [None]

NARRATIVE: CASE EVENT DATE: 20130218
